FAERS Safety Report 4716668-6 (Version None)
Quarter: 2005Q3

REPORT INFORMATION
  Report Type: 
  Country: None (occurrence: None)
  Receive Date: 20050714
  Receipt Date: 20050629
  Transmission Date: 20060218
  Serious: Yes (Hospitalization)
  Sender: FDA-Public Use
  Company Number: 200505531

PATIENT
  Age: 39 Year
  Sex: Female
  Weight: 52.1637 kg

DRUGS (1)
  1. BOTOX COSMETIC [Suspect]
     Indication: SKIN WRINKLING
     Dosage: 20 UNITS PRN IM
     Route: 030
     Dates: start: 20040503

REACTIONS (2)
  - FACIAL PALSY [None]
  - PAIN IN EXTREMITY [None]
